FAERS Safety Report 5836557-3 (Version None)
Quarter: 2008Q3

REPORT INFORMATION
  Report Type: 
  Country: None (occurrence: None)
  Receive Date: 20080807
  Receipt Date: 20080731
  Transmission Date: 20090109
  Serious: Yes (Congenital Anomaly)
  Sender: FDA-Public Use
  Company Number: GB-TEVA-174510ISR

PATIENT
  Age: 1 Hour

DRUGS (3)
  1. CITALOPRAM HYDROBROMIDE [Suspect]
     Indication: ANXIETY
     Route: 064
     Dates: start: 20070124, end: 20080423
  2. CITALOPRAM HYDROBROMIDE [Suspect]
     Indication: DEPRESSION
  3. PROPRANOLOL [Suspect]
     Indication: ANXIETY
     Route: 064
     Dates: start: 20070828

REACTIONS (1)
  - ANENCEPHALY [None]
